FAERS Safety Report 5992438-6 (Version None)
Quarter: 2008Q4

REPORT INFORMATION
  Report Type: 
  Country: None (occurrence: None)
  Receive Date: 20081202
  Receipt Date: 20071015
  Transmission Date: 20090506
  Serious: Yes (Disabling)
  Sender: FDA-Public Use
  Company Number: WAES 0710USA03061

PATIENT
  Age: 54 Year
  Sex: Female
  Weight: 80.2867 kg

DRUGS (8)
  1. FOSAMAX [Suspect]
     Indication: OSTEOPENIA
     Dosage: 10 MG/DAILY/PO : 70 MG/WKY/PO
     Route: 048
     Dates: end: 20031012
  2. FOSAMAX [Suspect]
     Indication: OSTEOPOROSIS
     Dosage: 10 MG/DAILY/PO : 70 MG/WKY/PO
     Route: 048
     Dates: end: 20031012
  3. FOSAMAX [Suspect]
     Indication: OSTEOPENIA
     Dosage: 10 MG/DAILY/PO : 70 MG/WKY/PO
     Route: 048
     Dates: start: 20010522
  4. FOSAMAX [Suspect]
     Indication: OSTEOPOROSIS
     Dosage: 10 MG/DAILY/PO : 70 MG/WKY/PO
     Route: 048
     Dates: start: 20010522
  5. ACTONEL [Concomitant]
  6. CRESTOR [Concomitant]
  7. PAXIL [Concomitant]
  8. SOMA [Concomitant]

REACTIONS (8)
  - DIVERTICULITIS [None]
  - DRUG HYPERSENSITIVITY [None]
  - GASTRITIS EROSIVE [None]
  - MELANOSIS COLI [None]
  - MUSCULOSKELETAL CHEST PAIN [None]
  - OSTEONECROSIS [None]
  - RESORPTION BONE INCREASED [None]
  - VOLUME BLOOD DECREASED [None]
